FAERS Safety Report 5386110-3 (Version None)
Quarter: 2007Q3

REPORT INFORMATION
  Report Type: 
  Country: None (occurrence: None)
  Receive Date: 20070710
  Receipt Date: 20070627
  Transmission Date: 20080115
  Serious: Yes (Hospitalization)
  Sender: FDA-Public Use
  Company Number: 02100-JPN-06-0176

PATIENT
  Age: 82 Year
  Sex: Female

DRUGS (5)
  1. CILOSTAZOL [Suspect]
     Indication: CEREBRAL INFARCTION
     Dosage: ONE OF 200 MG; ORAL
     Route: 048
     Dates: start: 20060123, end: 20060421
  2. CLOPIDOGREL [Suspect]
     Indication: CEREBRAL INFARCTION
     Dosage: 75 MG, ORAL
     Route: 048
     Dates: start: 20060123, end: 20060421
  3. ASPIRIN [Concomitant]
  4. CLINIDIPINE [Concomitant]
  5. ACECLOFENAC [Concomitant]

REACTIONS (6)
  - CEREBRAL ARTERY STENOSIS [None]
  - DISEASE PROGRESSION [None]
  - DYSPHASIA [None]
  - FACIAL PALSY [None]
  - HEMIPARESIS [None]
  - HEMIPLEGIA [None]
